FAERS Safety Report 5366350-X (Version None)
Quarter: 2007Q2

REPORT INFORMATION
  Report Type: 
  Country: None (occurrence: None)
  Receive Date: 20070620
  Receipt Date: 20070620
  Transmission Date: 20071010
  Serious: Yes (Hospitalization)
  Sender: FDA-Public Use
  Company Number: None

PATIENT
  Age: 67 Year
  Sex: Male
  Weight: 75 kg

DRUGS (3)
  1. LISINOPRIL [Suspect]
     Dosage: 20MG DAILY PO
     Route: 048
     Dates: start: 20070412, end: 20070611
  2. HYDROCHLOROTHIAZIDE [Concomitant]
  3. ATENOLOL [Concomitant]

REACTIONS (2)
  - ANGIOEDEMA [None]
  - SPEECH DISORDER [None]
